FAERS Safety Report 10676379 (Version 1)
Quarter: 2014Q4

REPORT INFORMATION
  Report Type: Spontaneous
  Country: GB (occurrence: GB)
  Receive Date: 20141226
  Receipt Date: 20141226
  Transmission Date: 20150529
  Serious: Yes (Death, Other)
  Sender: FDA-Public Use
  Company Number: GB-CIPLA LTD.-2014GB02889

PATIENT

DRUGS (1)
  1. CARBOPLATIN. [Suspect]
     Active Substance: CARBOPLATIN
     Indication: OVARIAN CANCER STAGE II

REACTIONS (7)
  - Oesophagitis [Unknown]
  - Gastritis [Unknown]
  - Renal failure [Unknown]
  - Systemic sclerosis [Unknown]
  - Anaemia [Unknown]
  - Cardiac arrest [Fatal]
  - Duodenitis [Unknown]
